FAERS Safety Report 24181314 (Version 1)
Quarter: 2024Q3

REPORT INFORMATION
  Report Type: Spontaneous
  Country: US (occurrence: US)
  Receive Date: 20240807
  Receipt Date: 20240807
  Transmission Date: 20241016
  Serious: No
  Sender: AILEX PHARMACEUTICALS
  Company Number: AP-2024-US-5831

PATIENT
  Age: 11 Year
  Sex: Female

DRUGS (1)
  1. CROMOLYN SODIUM [Suspect]
     Active Substance: CROMOLYN SODIUM
     Indication: Mastocytic enterocolitis
     Dosage: 1 VIAL EVERY 4 HOURS
     Route: 048

REACTIONS (2)
  - Product availability issue [Unknown]
  - Therapy interrupted [Unknown]
